FAERS Safety Report 6898310-1 (Version None)
Quarter: 2010Q3

REPORT INFORMATION
  Report Type: 
  Country: None (occurrence: None)
  Receive Date: 20100729
  Receipt Date: 20100721
  Transmission Date: 20110219
  Serious: Yes (Hospitalization)
  Sender: FDA-Public Use
  Company Number: 015911

PATIENT
  Sex: Male
  Weight: 69.4 kg

DRUGS (8)
  1. CIMZIA [Suspect]
     Indication: CROHN'S DISEASE
     Dosage: (UNSPECIFIED SUBCUTANEOUS)
     Route: 058
  2. REMICADE [Suspect]
     Indication: CROHN'S DISEASE
     Dosage: SEE IMAGE
     Dates: start: 20020101, end: 20020829
  3. REMICADE [Suspect]
     Indication: CROHN'S DISEASE
     Dosage: SEE IMAGE
     Dates: start: 20030422
  4. IMODIUM [Suspect]
     Indication: CROHN'S DISEASE
     Dosage: (UNSPECIFIED)
  5. ANTISPASMODICS IN COMBINATION WITH PSYCHOLEPT [Suspect]
     Indication: CROHN'S DISEASE
     Dosage: (UNSPECIFIED)
  6. NEXIUM [Suspect]
     Indication: CROHN'S DISEASE
     Dosage: (UNSPECIFIED)
  7. XIFAXAN [Suspect]
     Indication: CROHN'S DISEASE
     Dosage: (UNSPECIFIED)
  8. CHOLESTYRAMINE [Suspect]
     Indication: CROHN'S DISEASE
     Dosage: (UNSPECIFIED)

REACTIONS (7)
  - ANAL FISTULA [None]
  - CONDITION AGGRAVATED [None]
  - CROHN'S DISEASE [None]
  - DEHYDRATION [None]
  - HYPOKALAEMIA [None]
  - HYPOMAGNESAEMIA [None]
  - RENAL FAILURE ACUTE [None]
